FAERS Safety Report 6121610-X (Version None)
Quarter: 2009Q1

REPORT INFORMATION
  Report Type: 
  Country: None (occurrence: None)
  Receive Date: 20090317
  Receipt Date: 20090305
  Transmission Date: 20090719
  Serious: Yes (Other)
  Sender: FDA-Public Use
  Company Number: PHHY2009SI07993

PATIENT
  Age: 62 Year
  Sex: Female

DRUGS (8)
  1. LEPONEX [Suspect]
     Indication: SCHIZOPHRENIA
     Dosage: 350 MG
     Dates: start: 20090106, end: 20090209
  2. AKINETON [Concomitant]
  3. MODITEN-DEPO [Concomitant]
  4. ZOLPIDEM [Concomitant]
  5. ENAP [Concomitant]
  6. CORYOL [Concomitant]
  7. PORTAL [Concomitant]
  8. TERTENSIF [Concomitant]

REACTIONS (3)
  - BLOOD CREATININE INCREASED [None]
  - ILEUS PARALYTIC [None]
  - RENAL FAILURE [None]
